FAERS Safety Report 9639849 (Version 1)
Quarter: 2013Q4

REPORT INFORMATION
  Report Type: Spontaneous
  Country: US (occurrence: None)
  Receive Date: 20131021
  Receipt Date: 20131021
  Transmission Date: 20140711
  Serious: Yes (Disabling)
  Sender: FDA-Public Use
  Company Number: None

PATIENT
  Age: 25 Year
  Sex: Male
  Weight: 81.65 kg

DRUGS (1)
  1. ISOTRETINOIN [Suspect]
     Indication: ACNE CYSTIC
     Route: 048
     Dates: start: 20120418, end: 20121018

REACTIONS (9)
  - Exostosis [None]
  - Bunion [None]
  - Dry skin [None]
  - Alopecia [None]
  - Abnormal sensation in eye [None]
  - Skin mass [None]
  - Tendon calcification [None]
  - Ligament calcification [None]
  - Gastrointestinal pain [None]
